FAERS Safety Report 6161146-3 (Version None)
Quarter: 2009Q2

REPORT INFORMATION
  Report Type: 
  Country: None (occurrence: None)
  Receive Date: 20090417
  Receipt Date: 20090406
  Transmission Date: 20091009
  Serious: Yes (Hospitalization)
  Sender: FDA-Public Use
  Company Number: 8044598

PATIENT
  Age: 46 Year
  Sex: Female
  Weight: 44.5 kg

DRUGS (8)
  1. CIMZIA [Suspect]
     Indication: CROHN'S DISEASE
     Dosage: 400 MG SC
     Route: 058
     Dates: start: 20090309
  2. DIPENTUM [Concomitant]
  3. PRILOSEC [Concomitant]
  4. CLARITIN [Concomitant]
  5. FOSAMAX [Concomitant]
  6. COUMADIN [Concomitant]
  7. CALCIUM D [Concomitant]
  8. MULTI-VITAMIN [Concomitant]

REACTIONS (2)
  - ASTHENIA [None]
  - WEIGHT DECREASED [None]
